FAERS Safety Report 6788361-X (Version None)
Quarter: 2010Q2

REPORT INFORMATION
  Report Type: 
  Country: None (occurrence: None)
  Receive Date: 20100623
  Receipt Date: 20080320
  Transmission Date: 20101027
  Serious: No
  Sender: FDA-Public Use
  Company Number: US-PFIZER INC-2008006263

PATIENT
  Sex: Male
  Weight: 66.8 kg

DRUGS (2)
  1. GEODON [Suspect]
     Indication: MOOD SWINGS
     Dates: start: 20070101
  2. EFFEXOR [Suspect]
     Indication: MAJOR DEPRESSION

REACTIONS (4)
  - BELLIGERENCE [None]
  - HYPERSOMNIA [None]
  - SLEEP APNOEA SYNDROME [None]
  - SOMNOLENCE [None]
